FAERS Safety Report 7890501-6 (Version None)
Quarter: 2011Q4

REPORT INFORMATION
  Report Type: 
  Country: None (occurrence: None)
  Receive Date: 20111103
  Receipt Date: 20110722
  Transmission Date: 20120403
  Serious: Yes (Other)
  Sender: FDA-Public Use
  Company Number: US-AMGEN-USASP2011037368

PATIENT
  Age: 66 Year
  Sex: Female

DRUGS (10)
  1. ENBREL [Suspect]
     Indication: PRODUCT USED FOR UNKNOWN INDICATION
     Dosage: 25 MG, 2 TIMES/WK
     Route: 058
  2. SYNTHROID [Concomitant]
     Dosage: 50 A?G, UNK
  3. METHOTREXATE [Concomitant]
     Dosage: 25 MG, UNK
  4. B-COMPLEX                          /00003501/ [Concomitant]
  5. CALCIUM + VITAMIN D [Concomitant]
  6. VITAMIN D [Concomitant]
     Dosage: 1000 IU, UNK
  7. ASPIRIN [Concomitant]
     Dosage: 81 MG, UNK
  8. CENTRUM                            /00554501/ [Concomitant]
  9. VITAMIN B12                        /01750001/ [Concomitant]
  10. FOLIC ACID [Concomitant]
     Dosage: 1 MG, UNK

REACTIONS (1)
  - LUNG INFECTION [None]
